FAERS Safety Report 7350523-0 (Version None)
Quarter: 2011Q1

REPORT INFORMATION
  Report Type: 
  Country: None (occurrence: None)
  Receive Date: 20110309
  Receipt Date: 20110309
  Transmission Date: 20110831
  Serious: Yes (Hospitalization)
  Sender: FDA-Public Use
  Company Number: None

PATIENT
  Age: 57 Year
  Sex: Female
  Weight: 123.832 kg

DRUGS (1)
  1. ZESTRIL [Suspect]
     Indication: BLOOD PRESSURE ABNORMAL
     Dosage: 1 TABLET DAILY 1 TABLET DAILY
     Dates: start: 20101003, end: 20110210

REACTIONS (5)
  - DISTURBANCE IN ATTENTION [None]
  - DYSPNOEA [None]
  - COUGH [None]
  - MEMORY IMPAIRMENT [None]
  - INSOMNIA [None]
